FAERS Safety Report 7212385-1 (Version None)
Quarter: 2010Q4

REPORT INFORMATION
  Report Type: 
  Country: None (occurrence: None)
  Receive Date: 20101227
  Receipt Date: 20101217
  Transmission Date: 20110411
  Serious: Yes (Hospitalization, Other)
  Sender: FDA-Public Use
  Company Number: 023884

PATIENT
  Sex: Female
  Weight: 44 kg

DRUGS (2)
  1. NEUPRO [Suspect]
     Indication: PARKINSON'S DISEASE
     Dosage: 2 MG QD, TRANSDERMAL, 4 MG QD, TRANSDERMAL
     Route: 062
     Dates: start: 20090915, end: 20090922
  2. NEUPRO [Suspect]
     Indication: PARKINSON'S DISEASE
     Dosage: 2 MG QD, TRANSDERMAL, 4 MG QD, TRANSDERMAL
     Route: 062
     Dates: start: 20090923

REACTIONS (1)
  - CONFUSIONAL STATE [None]
